FAERS Safety Report 5974826-7 (Version None)
Quarter: 2008Q4

REPORT INFORMATION
  Report Type: 
  Country: None (occurrence: None)
  Receive Date: 20081201
  Receipt Date: 20081126
  Transmission Date: 20090506
  Serious: Yes (Hospitalization, Other)
  Sender: FDA-Public Use
  Company Number: FR-PFIZER INC-2008100520

PATIENT
  Age: 80 Year
  Sex: Male

DRUGS (3)
  1. LYRICA [Suspect]
     Indication: NEURALGIA
  2. TRAMADOL HCL [Suspect]
  3. DRUG, UNSPECIFIED [Concomitant]

REACTIONS (2)
  - COMA [None]
  - UNEVALUABLE EVENT [None]
